FAERS Safety Report 5912945-1 (Version None)
Quarter: 2008Q4

REPORT INFORMATION
  Report Type: 
  Country: None (occurrence: None)
  Receive Date: 20081006
  Receipt Date: 20080925
  Transmission Date: 20090506
  Serious: Yes (Death)
  Sender: FDA-Public Use
  Company Number: CHPA2008US16114

PATIENT
  Age: 2 Month
  Sex: Female

DRUGS (6)
  1. DEXTROMETHORPHAN HYDROBROMIDE [Suspect]
  2. ACETAMINOPHEN [Suspect]
  3. PSEUDOEPHEDRINE HCL [Suspect]
  4. EPHEDRINE (EPHEDRINE) [Suspect]
  5. CARBINOXAMINE MALEATE [Suspect]
  6. DRUG THERAPY NOS (DRUG THERAPY NOS) [Suspect]

REACTIONS (2)
  - DRUG TOXICITY [None]
  - UNRESPONSIVE TO STIMULI [None]
